FAERS Safety Report 10027730 (Version 2)
Quarter: 2014Q1

REPORT INFORMATION
  Report Type: Spontaneous
  Country: FR (occurrence: FR)
  Receive Date: 20140321
  Receipt Date: 20140321
  Transmission Date: 20141002
  Serious: Yes (Other)
  Sender: FDA-Public Use
  Company Number: FR-SA-THYM-1002839

PATIENT
  Age: 57 Year
  Sex: Male
  Weight: 71 kg

DRUGS (16)
  1. THYMOGLOBULINE [Suspect]
     Indication: BONE MARROW CONDITIONING REGIMEN
     Dosage: 145.6 MG, QD
     Route: 042
     Dates: start: 20111011, end: 20111011
  2. THYMOGLOBULINE [Suspect]
     Indication: BONE MARROW CONDITIONING REGIMEN
     Dosage: 2 MG, QD
     Route: 042
     Dates: start: 20111012, end: 20111012
  3. FLUDARA [Suspect]
     Indication: BONE MARROW CONDITIONING REGIMEN
     Dosage: 55.62 MG, QD
     Route: 065
     Dates: start: 20111007, end: 20111009
  4. FLUDARA [Suspect]
     Indication: BONE MARROW CONDITIONING REGIMEN
     Dosage: 55.62 MG, QD
     Route: 065
     Dates: start: 20111011, end: 20111011
  5. BUSULFAN [Concomitant]
     Indication: PLASMA CELL MYELOMA
     Dosage: 58.24 MG, BID
     Route: 051
     Dates: start: 20111008, end: 20111009
  6. CHLORPHENAMINE MALEATE [Concomitant]
     Indication: PLASMA CELL MYELOMA
     Dosage: 10 MG, QD
     Route: 042
     Dates: start: 20111010, end: 20111012
  7. SOLU-MEDROL [Concomitant]
     Indication: PLASMA CELL MYELOMA
     Dosage: 20 MG, QD
     Dates: start: 20111010, end: 20111013
  8. VITAMINS NOS [Concomitant]
     Dosage: 5 ML, QD
     Dates: start: 20111006, end: 20111006
  9. MINERALS NOS/SODIUM MOLYBDATE/VITAMINS NOS [Concomitant]
     Dosage: 10 ML, QD
     Dates: start: 20111006, end: 20111006
  10. MAGNESIUM [Concomitant]
     Dosage: 10 ML, QD
     Dates: start: 20111006, end: 20111006
  11. ONDANSETRON HYDROCHLORIDE [Concomitant]
     Indication: VOMITING
     Dosage: UNK
     Dates: start: 20111007, end: 20111012
  12. URSODEOXYCHOLIC ACID [Concomitant]
     Dosage: 500 MG, BID
     Route: 048
     Dates: start: 20111007, end: 20111007
  13. PANTOPRAZOLE [Concomitant]
     Dosage: 20 MG, UNK
     Dates: start: 20111007, end: 20111007
  14. ALLOPURINOL [Concomitant]
     Dosage: 300 MG, QD
     Dates: start: 20111007, end: 20111007
  15. DIAZEPAM [Concomitant]
     Dosage: 10 MG, QD
     Route: 042
     Dates: start: 20111008, end: 20111010
  16. PROTON PUMP INHIBITORS [Concomitant]
     Dosage: 40 MG, QD
     Dates: start: 20111012

REACTIONS (2)
  - Hepatocellular injury [Recovered/Resolved]
  - Transaminases increased [Recovered/Resolved]
